FAERS Safety Report 22818691 (Version 4)
Quarter: 2024Q1

REPORT INFORMATION
  Report Type: Report from Study
  Country: GB (occurrence: GB)
  Receive Date: 20230814
  Receipt Date: 20240101
  Transmission Date: 20240409
  Serious: Yes (Death, Hospitalization)
  Sender: FDA-Public Use
  Company Number: GB-ABBVIE-5364885

PATIENT
  Sex: Female

DRUGS (4)
  1. CARBIDOPA\LEVODOPA [Suspect]
     Active Substance: CARBIDOPA\LEVODOPA
     Indication: Parkinson^s disease
     Dosage: MD: 6.0 MLS; CR: 3.6 MLS/HR AND ED 2.9 MLS
     Route: 050
     Dates: start: 2023
  2. CARBIDOPA\LEVODOPA [Suspect]
     Active Substance: CARBIDOPA\LEVODOPA
     Dosage: 20MG/5MG; 100ML CASSETTE
     Route: 050
     Dates: end: 2023
  3. AMANTADINE [Concomitant]
     Active Substance: AMANTADINE
     Indication: Product used for unknown indication
     Dosage: FREQUENCY TEXT: AT 08.00 AM AND 14.00 PM
  4. STALEVO [Concomitant]
     Active Substance: CARBIDOPA\ENTACAPONE\LEVODOPA
     Indication: Product used for unknown indication
     Dosage: 100/25/200 MGS?FREQUENCY TEXT: AT 21.00 PM

REACTIONS (6)
  - Death [Fatal]
  - Cervix cancer metastatic [Not Recovered/Not Resolved]
  - Bone cancer metastatic [Unknown]
  - Stoma site discharge [Not Recovered/Not Resolved]
  - Dyskinesia [Unknown]
  - Pathological fracture [Unknown]

NARRATIVE: CASE EVENT DATE: 20230101
